FAERS Safety Report 5160008-8 (Version None)
Quarter: 2006Q4

REPORT INFORMATION
  Report Type: 
  Country: None (occurrence: None)
  Receive Date: 20061129
  Receipt Date: 20060620
  Transmission Date: 20070319
  Serious: Yes (Other)
  Sender: FDA-Public Use
  Company Number: US-GLAXOSMITHKLINE-A0609699A

PATIENT
  Age: 63 Year
  Sex: Male

DRUGS (13)
  1. WELLBUTRIN SR [Suspect]
     Indication: DEPRESSION
     Dosage: 150MG TWICE PER DAY
     Route: 048
     Dates: start: 20060516
  2. XANAX [Concomitant]
  3. VALIUM [Concomitant]
  4. LIPITOR [Concomitant]
  5. ZETIA [Concomitant]
  6. TRICOR [Concomitant]
  7. ALLOPURINOL [Concomitant]
  8. NIASPAN [Concomitant]
  9. AVODART [Concomitant]
  10. CARTIA XT [Concomitant]
  11. ASPIRIN [Concomitant]
  12. TOPROL-XL [Concomitant]
  13. FISH OIL [Concomitant]

REACTIONS (1)
  - HALLUCINATION [None]
